FAERS Safety Report 13953055 (Version 1)
Quarter: 2017Q3

REPORT INFORMATION
  Report Type: Spontaneous
  Country: US (occurrence: US)
  Receive Date: 20170911
  Receipt Date: 20170911
  Transmission Date: 20171128
  Serious: No
  Sender: FDA-Public Use
  Company Number: US-TEVA-782467ACC

PATIENT

DRUGS (1)
  1. HYDROCODONE BITARTRATE AND ACETAMINOPHEN [Suspect]
     Active Substance: ACETAMINOPHEN\HYDROCODONE BITARTRATE
     Indication: PAIN
     Dosage: BEEN ON THE MEDICATION FOR 6 YEARS

REACTIONS (5)
  - Drug ineffective [Unknown]
  - Adverse event [Unknown]
  - Malaise [Unknown]
  - Product colour issue [Unknown]
  - Vomiting [Unknown]
